FAERS Safety Report 12735521 (Version 1)
Quarter: 2016Q3

REPORT INFORMATION
  Report Type: Spontaneous
  Country: US (occurrence: US)
  Receive Date: 20160912
  Receipt Date: 20160912
  Transmission Date: 20161109
  Serious: Yes (Other)
  Sender: FDA-Public Use
  Company Number: US-AMGEN-USASP2016115766

PATIENT
  Age: 49 Year
  Sex: Male

DRUGS (1)
  1. ENBREL [Suspect]
     Active Substance: ETANERCEPT
     Indication: BACTERIAL INFECTION
     Dosage: 50 MG, QWK
     Route: 058

REACTIONS (4)
  - Furuncle [Recovering/Resolving]
  - Purulent discharge [Recovering/Resolving]
  - Off label use [Unknown]
  - Rash [Recovering/Resolving]
